FAERS Safety Report 19766936 (Version 1)
Quarter: 2021Q3

REPORT INFORMATION
  Report Type: Spontaneous
  Country: US (occurrence: US)
  Receive Date: 20210830
  Receipt Date: 20210830
  Transmission Date: 20211014
  Serious: Yes (Life-Threatening)
  Sender: FDA-Public Use
  Company Number: None

PATIENT

DRUGS (2)
  1. GEMFIBROZIL 600 MG [Suspect]
     Active Substance: GEMFIBROZIL
  2. ATORVASTATIN [Suspect]
     Active Substance: ATORVASTATIN

REACTIONS (3)
  - C-reactive protein increased [None]
  - Red blood cell sedimentation rate increased [None]
  - Blood creatine phosphokinase increased [None]
